FAERS Safety Report 5807103-5 (Version None)
Quarter: 2008Q3

REPORT INFORMATION
  Report Type: 
  Country: None (occurrence: None)
  Receive Date: 20080711
  Receipt Date: 20080702
  Transmission Date: 20090109
  Serious: Yes (Hospitalization, Other)
  Sender: FDA-Public Use
  Company Number: CA-JNJFOC-20080401352

PATIENT
  Sex: Male

DRUGS (4)
  1. REMICADE [Suspect]
  2. REMICADE [Suspect]
  3. REMICADE [Suspect]
  4. REMICADE [Suspect]
     Indication: SARCOIDOSIS
     Dosage: RECEIVED 22 INFUSIONS TO DATE

REACTIONS (2)
  - CEREBROVASCULAR ACCIDENT [None]
  - RENAL DISORDER [None]
